FAERS Safety Report 5504969-3 (Version None)
Quarter: 2007Q4

REPORT INFORMATION
  Report Type: 
  Country: None (occurrence: None)
  Receive Date: 20071102
  Receipt Date: 20071026
  Transmission Date: 20080405
  Serious: Yes (Other)
  Sender: FDA-Public Use
  Company Number: JP-BAYER-200710790BYL

PATIENT
  Sex: Male

DRUGS (2)
  1. ASPIRIN [Suspect]
     Route: 048
  2. ANTIHYPERTENSIVES [Concomitant]
     Route: 048

REACTIONS (1)
  - THROMBOCYTOPENIA [None]
